FAERS Safety Report 15325013 (Version 3)
Quarter: 2019Q1

REPORT INFORMATION
  Report Type: Report from Study
  Country: US (occurrence: US)
  Receive Date: 20180828
  Receipt Date: 20190218
  Transmission Date: 20190417
  Serious: Yes (Hospitalization, Other)
  Sender: FDA-Public Use
  Company Number: US-ROCHE-2170392

PATIENT
  Age: 66 Year
  Sex: Male
  Weight: 85.8 kg

DRUGS (22)
  1. SODIUM CHLORIDE. [Concomitant]
     Active Substance: SODIUM CHLORIDE
     Dosage: SODIUM CHLORIDE 0.9% INJECTION FLUSH 250 ML
     Route: 065
     Dates: start: 20180813, end: 20180813
  2. ULTRAM [Concomitant]
     Active Substance: TRAMADOL HYDROCHLORIDE
     Indication: PAIN
     Route: 065
     Dates: start: 20180814
  3. ULTRAM [Concomitant]
     Active Substance: TRAMADOL HYDROCHLORIDE
     Route: 048
     Dates: start: 20180703
  4. BENADRYL [Concomitant]
     Active Substance: DIPHENHYDRAMINE HYDROCHLORIDE
     Dosage: DIPHENHYDRAMINE HYDROCHLORIDE 50 MG/ML
     Route: 065
     Dates: start: 20180813, end: 20180813
  5. VISIPAQUE [Concomitant]
     Active Substance: IODIXANOL
     Dosage: INJECTION 1-170 ML
     Route: 065
     Dates: start: 20180813, end: 20180813
  6. GADAVIST [Concomitant]
     Active Substance: GADOBUTROL
     Dosage: GADOBUTROL 7.5 MMOL/7.5 ML INJECTION 0.5-20ML
     Route: 065
     Dates: start: 20180813
  7. DELTASONE [Concomitant]
     Active Substance: PREDNISONE
     Dosage: TAKE 1 TABLET 13 HRS PRIOR TO SCAN, 7 HRS PRIOR TO SACN AND 1 HR PRIOR TO SCAN
     Route: 048
  8. ATEZOLIZUMAB. [Suspect]
     Active Substance: ATEZOLIZUMAB
     Indication: METASTATIC MALIGNANT MELANOMA
     Route: 048
     Dates: start: 20180703
  9. SODIUM CHLORIDE. [Concomitant]
     Active Substance: SODIUM CHLORIDE
     Dosage: SODIUM CHLORIDE 0.9% INJECTION FLUSH 10 ML
     Route: 065
     Dates: start: 20180813, end: 20180816
  10. SODIUM CHLORIDE. [Concomitant]
     Active Substance: SODIUM CHLORIDE
     Dosage: SODIUM CHLORIDE 0.9%
     Route: 040
     Dates: start: 20180813, end: 20180813
  11. K-DUR [Concomitant]
     Active Substance: POTASSIUM CHLORIDE
     Route: 065
     Dates: start: 20180813, end: 20180813
  12. ULTRAM [Concomitant]
     Active Substance: TRAMADOL HYDROCHLORIDE
     Route: 065
     Dates: start: 20180813
  13. GADAVIST [Concomitant]
     Active Substance: GADOBUTROL
     Dosage: GADOBUTROL 10 MMOL/10 ML INJECTION 0.5-20ML
     Route: 065
     Dates: start: 20180813
  14. BEVACIZUMAB. [Suspect]
     Active Substance: BEVACIZUMAB
     Indication: METASTATIC MALIGNANT MELANOMA
     Route: 042
     Dates: start: 20180703
  15. ASPRIN-EC [Concomitant]
     Route: 065
     Dates: start: 20180814, end: 20180816
  16. SODIUM CHLORIDE. [Concomitant]
     Active Substance: SODIUM CHLORIDE
     Dosage: SODIUM CHLORIDE 0.9% INJECTION 100 ML
     Route: 040
     Dates: start: 20180813, end: 20180813
  17. OMNIPAQUE [Concomitant]
     Active Substance: IOHEXOL
     Dosage: IOHEXOL 350 MG IODINE/ML INJECTION 1-170 ML
     Route: 065
     Dates: start: 20180813
  18. SODIUM CHLORIDE. [Concomitant]
     Active Substance: SODIUM CHLORIDE
     Dosage: SODIUM CHLORIDE 0.9%
     Route: 040
     Dates: start: 20180813, end: 20180813
  19. MULTIHANCE [Concomitant]
     Active Substance: GADOBENATE DIMEGLUMINE
     Dosage: MEGLUMINE GADOBENATE 529MG/ML (0.1 MMOL/0.2ML) INJECTION 0.5-20ML
     Route: 065
     Dates: start: 20180813, end: 20180813
  20. POTASSIUM CHLORIDE/SODIUM CHLORIDE [Concomitant]
     Active Substance: POTASSIUM CHLORIDE\SODIUM CHLORIDE
     Dosage: POTASSIUM CHLORIDE 20MEQ IN SODIUM CHLORIDE 0.45 % (1/2NS) 500 ML
     Route: 042
     Dates: start: 20180813, end: 20180813
  21. NORCO [Concomitant]
     Active Substance: ACETAMINOPHEN\HYDROCODONE BITARTRATE
     Dosage: DOSE: 7.5MG-325MG
     Route: 065
     Dates: start: 20180813
  22. LOVENOX [Concomitant]
     Active Substance: ENOXAPARIN SODIUM
     Dosage: 40MG/0.4ML
     Route: 065
     Dates: start: 20180814

REACTIONS (2)
  - Atrial fibrillation [Unknown]
  - Hypertension [Unknown]

NARRATIVE: CASE EVENT DATE: 20180813
